FAERS Safety Report 23471283 (Version 1)
Quarter: 2024Q1

REPORT INFORMATION
  Report Type: Spontaneous
  Country: CA (occurrence: CA)
  Receive Date: 20240202
  Receipt Date: 20240202
  Transmission Date: 20240409
  Serious: Yes (Other)
  Sender: FDA-Public Use
  Company Number: CA-FreseniusKabi-FK202401762

PATIENT
  Age: 55 Year
  Sex: Female

DRUGS (6)
  1. ETOPOSIDE [Suspect]
     Active Substance: ETOPOSIDE
     Indication: Choriocarcinoma
     Dosage: DOSAGE FORM: NOT SPECIFIED
     Route: 065
  2. CISPLATIN [Suspect]
     Active Substance: CISPLATIN
     Indication: Choriocarcinoma
     Dosage: FOA-SOLUTION INTRAVENOUS
     Route: 042
  3. COSMEGEN [Suspect]
     Active Substance: DACTINOMYCIN
     Indication: Choriocarcinoma
     Dosage: FOA-POWDER FOR SOLUTION INTRAVENOUS
     Route: 042
  4. METHOTREXATE [Suspect]
     Active Substance: METHOTREXATE
     Indication: Choriocarcinoma
     Dosage: FOA-NOT SPECIFIED
     Route: 065
  5. ONCOVIN [Suspect]
     Active Substance: VINCRISTINE SULFATE
     Indication: Choriocarcinoma
     Dosage: FOA-NOT SPECIFIED
     Route: 065
  6. CYCLOPHOSPHAMIDE [Suspect]
     Active Substance: CYCLOPHOSPHAMIDE
     Indication: Choriocarcinoma
     Dosage: FOA-INTRAVENOUS (NOT OTHERWISE SPECIFIED)
     Route: 065

REACTIONS (4)
  - Drug resistance [Unknown]
  - Disease progression [Unknown]
  - Metastases to central nervous system [Unknown]
  - Product use in unapproved indication [Unknown]
